FAERS Safety Report 8104195-8 (Version None)
Quarter: 2012Q1

REPORT INFORMATION
  Report Type: 
  Country: None (occurrence: None)
  Receive Date: 20120201
  Receipt Date: 20120117
  Transmission Date: 20120608
  Serious: Yes (Other)
  Sender: FDA-Public Use
  Company Number: US-WATSON-2012-01215

PATIENT
  Age: 28 Year
  Sex: Female

DRUGS (1)
  1. MINOCYCLINE HCL [Suspect]
     Indication: ACNE
     Dosage: UNK
     Route: 065

REACTIONS (2)
  - OSTEOMA CUTIS [None]
  - PIGMENTATION DISORDER [None]
